FAERS Safety Report 14454534 (Version 1)
Quarter: 2018Q1

REPORT INFORMATION
  Report Type: Spontaneous
  Country: US (occurrence: US)
  Receive Date: 20180126
  Receipt Date: 20180126
  Transmission Date: 20180509
  Serious: Yes (Hospitalization)
  Sender: FDA-Public Use
  Company Number: None

PATIENT
  Age: 61 Year
  Sex: Male
  Weight: 69.8 kg

DRUGS (7)
  1. ALPRAZOLAM. [Concomitant]
     Active Substance: ALPRAZOLAM
  2. POLYETHYLENE GLYCOL [Concomitant]
     Active Substance: POLYETHYLENE GLYCOLS
  3. DOCUSATE [Concomitant]
     Active Substance: DOCUSATE
  4. HYDROCODONE-ACETAMINOPHEN [Concomitant]
     Active Substance: ACETAMINOPHEN\HYDROCODONE
  5. APIXABAN [Suspect]
     Active Substance: APIXABAN
     Indication: THROMBOSIS
     Dosage: BID PEG TUBE
     Dates: start: 20171031
  6. BISACODYL. [Concomitant]
     Active Substance: BISACODYL
  7. SENNOSIDES. [Concomitant]
     Active Substance: SENNOSIDES

REACTIONS (3)
  - Vomiting [None]
  - Pleural effusion [None]
  - Small intestinal obstruction [None]

NARRATIVE: CASE EVENT DATE: 20180125
